FAERS Safety Report 5650214-8 (Version None)
Quarter: 2008Q1

REPORT INFORMATION
  Report Type: 
  Country: None (occurrence: None)
  Receive Date: 20080222
  Receipt Date: 20080219
  Transmission Date: 20080703
  Serious: Yes (Other)
  Sender: FDA-Public Use
  Company Number: 200812865

PATIENT

DRUGS (1)
  1. SANDOGLOBULINA (IMMUNOGLOBULIN HUMAN NORMAL) (CSL BEHRING) [Suspect]
     Indication: URTICARIA CHRONIC
     Dosage: IV
     Route: 042

REACTIONS (5)
  - CHEST DISCOMFORT [None]
  - HYPERHIDROSIS [None]
  - HYPOTENSION [None]
  - TACHYCARDIA [None]
  - URTICARIA [None]
